FAERS Safety Report 18469071 (Version 1)
Quarter: 2020Q4

REPORT INFORMATION
  Report Type: Spontaneous
  Country: ES (occurrence: ES)
  Receive Date: 20201105
  Receipt Date: 20201105
  Transmission Date: 20210114
  Serious: Yes (Hospitalization, Other)
  Sender: FDA-Public Use
  Company Number: ES-SA-2019SA273966

PATIENT

DRUGS (1)
  1. VANDETANIB. [Suspect]
     Active Substance: VANDETANIB
     Indication: MEDULLARY THYROID CANCER
     Dosage: 300 MG, QD
     Route: 048
     Dates: start: 20190620

REACTIONS (7)
  - Kidney fibrosis [Unknown]
  - Acute kidney injury [Unknown]
  - Proteinuria [Unknown]
  - Capillary disorder [Unknown]
  - Blood creatinine increased [Unknown]
  - Hypertension [Unknown]
  - Tubulointerstitial nephritis [Unknown]
